FAERS Safety Report 4482303-8 (Version None)
Quarter: 2004Q4

REPORT INFORMATION
  Report Type: 
  Country: None (occurrence: None)
  Receive Date: 20041022
  Receipt Date: 20040728
  Transmission Date: 20050328
  Serious: Yes (Disabling, Other)
  Sender: FDA-Public Use
  Company Number: US-MERCK-0407USA02456

PATIENT
  Age: 55 Year
  Sex: Female
  Weight: 55 kg

DRUGS (15)
  1. FOSAMAX [Suspect]
     Indication: OSTEOPOROSIS
     Route: 048
     Dates: start: 19980101
  2. FOSAMAX [Suspect]
     Route: 048
     Dates: start: 20020101, end: 20020101
  3. CARDIZEM [Concomitant]
     Route: 065
  4. LOPRESSOR [Concomitant]
     Route: 065
  5. SINGULAIR [Concomitant]
     Route: 048
  6. ALBUTEROL [Concomitant]
     Route: 065
  7. EVISTA [Concomitant]
     Route: 065
  8. MOTRIN [Concomitant]
     Route: 065
  9. ULTRACET [Concomitant]
     Route: 065
  10. SKELAXIN [Concomitant]
     Route: 065
  11. BOTOX [Suspect]
     Route: 065
  12. COREG [Concomitant]
     Route: 065
  13. TOPROL-XL [Concomitant]
     Route: 065
  14. NOLVADEX [Suspect]
     Route: 065
  15. FARESTON [Suspect]
     Route: 065

REACTIONS (14)
  - ABASIA [None]
  - BACK PAIN [None]
  - BLOOD PRESSURE SYSTOLIC INCREASED [None]
  - BONE DENSITY DECREASED [None]
  - CARDIAC DISORDER [None]
  - CHEST PAIN [None]
  - DYSPNOEA [None]
  - GAIT DISTURBANCE [None]
  - GASTROINTESTINAL DISORDER [None]
  - HEART RATE IRREGULAR [None]
  - NECK PAIN [None]
  - PAIN IN JAW [None]
  - PALPITATIONS [None]
  - SPINAL CORD DISORDER [None]
